FAERS Safety Report 17142609 (Version 1)
Quarter: 2019Q4

REPORT INFORMATION
  Report Type: Spontaneous
  Country: AU (occurrence: AU)
  Receive Date: 20191211
  Receipt Date: 20191211
  Transmission Date: 20200122
  Serious: Yes (Hospitalization)
  Sender: FDA-Public Use
  Company Number: AU-EISAI MEDICAL RESEARCH-EC-2019-060669

PATIENT
  Age: 68 Year
  Sex: Male

DRUGS (1)
  1. LENVIMA [Suspect]
     Active Substance: LENVATINIB
     Indication: HEPATOCELLULAR CARCINOMA
     Route: 048

REACTIONS (7)
  - Encephalopathy [Recovered/Resolved]
  - Hypothyroidism [Unknown]
  - Nausea [Unknown]
  - Proteinuria [Unknown]
  - Vomiting [Unknown]
  - Hypertension [Unknown]
  - Thrombocytopenia [Unknown]
